FAERS Safety Report 18998119 (Version 3)
Quarter: 2023Q4

REPORT INFORMATION
  Report Type: Spontaneous
  Country: US (occurrence: US)
  Receive Date: 20210311
  Receipt Date: 20231025
  Transmission Date: 20240110
  Serious: No
  Sender: FDA-Public Use
  Company Number: US-PFIZER INC-2021257696

PATIENT
  Age: 57 Year
  Sex: Male

DRUGS (1)
  1. INLYTA [Suspect]
     Active Substance: AXITINIB
     Dosage: 5 MG
     Dates: start: 20210112

REACTIONS (13)
  - Abdominal pain upper [Unknown]
  - Hepatic enzyme increased [Unknown]
  - Blood calcium increased [Recovered/Resolved]
  - Frequent bowel movements [Unknown]
  - Constipation [Unknown]
  - Abdominal discomfort [Unknown]
  - Nausea [Unknown]
  - Dizziness [Unknown]
  - Skin exfoliation [Unknown]
  - Fatigue [Unknown]
  - Vomiting [Unknown]
  - Dyspepsia [Unknown]
  - Product dose omission issue [Unknown]

NARRATIVE: CASE EVENT DATE: 20210101
